FAERS Safety Report 5866027-8 (Version None)
Quarter: 2008Q3

REPORT INFORMATION
  Report Type: 
  Country: None (occurrence: None)
  Receive Date: 20080829
  Receipt Date: 20080820
  Transmission Date: 20090109
  Serious: Yes (Other)
  Sender: FDA-Public Use
  Company Number: US-PFIZER INC-2008062286

PATIENT
  Sex: Female
  Weight: 50.8 kg

DRUGS (6)
  1. NEURONTIN [Suspect]
     Indication: SYRINGOMYELIA
     Dates: start: 20000901, end: 20000101
  2. NEURONTIN [Suspect]
     Indication: RADICULOPATHY
  3. LYRICA [Suspect]
     Indication: SYRINGOMYELIA
     Route: 048
     Dates: start: 20080612, end: 20080701
  4. MOTRIN [Concomitant]
  5. CODEINE SUL TAB [Concomitant]
  6. TYLENOL (CAPLET) [Concomitant]

REACTIONS (46)
  - ASTHENIA [None]
  - BACK PAIN [None]
  - BLISTER [None]
  - CATARACT [None]
  - CONSTIPATION [None]
  - COORDINATION ABNORMAL [None]
  - DEPRESSION [None]
  - DISABILITY [None]
  - DIZZINESS [None]
  - DRY MOUTH [None]
  - DYSURIA [None]
  - EYE MOVEMENT DISORDER [None]
  - FATIGUE [None]
  - FEELING DRUNK [None]
  - FRUSTRATION [None]
  - FUNGAL INFECTION [None]
  - GAIT DISTURBANCE [None]
  - GLAUCOMA [None]
  - HOT FLUSH [None]
  - HYPERHIDROSIS [None]
  - HYPERSENSITIVITY [None]
  - INCREASED APPETITE [None]
  - INFLAMMATION [None]
  - INFLUENZA [None]
  - INSOMNIA [None]
  - JOINT SWELLING [None]
  - MUSCLE STRAIN [None]
  - MUSCULOSKELETAL PAIN [None]
  - NAIL DISORDER [None]
  - NAIL GROWTH ABNORMAL [None]
  - NASAL CONGESTION [None]
  - OEDEMA PERIPHERAL [None]
  - ONYCHOCLASIS [None]
  - OROPHARYNGEAL PAIN [None]
  - PAIN [None]
  - PAIN IN EXTREMITY [None]
  - PYREXIA [None]
  - RASH [None]
  - SCIATICA [None]
  - SKIN ATROPHY [None]
  - SKIN HAEMORRHAGE [None]
  - TREMOR [None]
  - VAGINAL DISCHARGE [None]
  - VISUAL IMPAIRMENT [None]
  - WALKING AID USER [None]
  - WEIGHT INCREASED [None]
